FAERS Safety Report 6044930-6 (Version None)
Quarter: 2009Q1

REPORT INFORMATION
  Report Type: 
  Country: None (occurrence: None)
  Receive Date: 20090121
  Receipt Date: 20090109
  Transmission Date: 20090719
  Serious: Yes (Hospitalization)
  Sender: FDA-Public Use
  Company Number: GB-PFIZER INC-2009155010

PATIENT

DRUGS (8)
  1. BLINDED *PLACEBO [Suspect]
     Indication: RENAL CELL CARCINOMA
     Dosage: 50 MG, 1X/DAY
     Route: 048
     Dates: start: 20081222
  2. BLINDED SUNITINIB MALATE [Suspect]
     Indication: RENAL CELL CARCINOMA
     Dosage: 50 MG, 1X/DAY
     Route: 048
     Dates: start: 20081222
  3. ADCAL [Concomitant]
     Dosage: UNK
     Route: 048
  4. CANDESARTAN [Concomitant]
     Route: 048
     Dates: end: 20090112
  5. AMLODIPINE [Concomitant]
     Dosage: UNK
     Route: 048
  6. GLICLAZIDE [Concomitant]
     Dosage: UNK
     Route: 048
  7. METFORMIN [Concomitant]
     Route: 048
     Dates: end: 20090109
  8. OMEPRAZOLE [Concomitant]
     Dosage: UNK
     Route: 048

REACTIONS (9)
  - ACUTE HEPATIC FAILURE [None]
  - HEADACHE [None]
  - HYPERTENSION [None]
  - JAUNDICE [None]
  - LETHARGY [None]
  - NAUSEA [None]
  - ORAL PAIN [None]
  - RENAL FAILURE ACUTE [None]
  - TREMOR [None]
